FAERS Safety Report 25537827 (Version 1)
Quarter: 2025Q3

REPORT INFORMATION
  Report Type: Spontaneous
  Country: CA (occurrence: CA)
  Receive Date: 20250710
  Receipt Date: 20250710
  Transmission Date: 20251021
  Serious: Yes (Hospitalization, Other)
  Sender: CELLTRION
  Company Number: CA-CELLTRION INC.-2025CA021897

PATIENT

DRUGS (2)
  1. YUFLYMA [Suspect]
     Active Substance: ADALIMUMAB-AATY
     Indication: Ankylosing spondylitis
     Dosage: MAINTENANCE - 40 MG - SC (SUBCUTANEOUS) EVERY 2 WEEKS
     Route: 058
     Dates: start: 20250430
  2. YUFLYMA [Suspect]
     Active Substance: ADALIMUMAB-AATY
     Dosage: MAINTENANCE - 40 MG - SC (SUBCUTANEOUS) EVERY 2 WEEKS
     Route: 058
     Dates: start: 20250626

REACTIONS (1)
  - Lower limb fracture [Unknown]
